FAERS Safety Report 8475150-3 (Version None)
Quarter: 2012Q2

REPORT INFORMATION
  Report Type: 
  Country: None (occurrence: None)
  Receive Date: 20120628
  Receipt Date: 20120622
  Transmission Date: 20120825
  Serious: Yes (Other)
  Sender: FDA-Public Use
  Company Number: US-PFIZER INC-2011307461

PATIENT
  Sex: Female
  Weight: 68.027 kg

DRUGS (3)
  1. LYRICA [Suspect]
     Indication: FIBROMYALGIA
     Dosage: 100 MG, 4X/DAY
     Route: 048
     Dates: start: 20070101, end: 20120619
  2. TRAMADOL [Concomitant]
     Dosage: UNK
  3. IBUPROFEN [Concomitant]
     Dosage: UNK

REACTIONS (11)
  - DRUG DEPENDENCE [None]
  - BEDRIDDEN [None]
  - TUNNEL VISION [None]
  - AGGRESSION [None]
  - EYE PRURITUS [None]
  - PAIN [None]
  - CARDIAC FLUTTER [None]
  - MOVEMENT DISORDER [None]
  - DEPRESSED MOOD [None]
  - VISUAL IMPAIRMENT [None]
  - FEELING ABNORMAL [None]
